FAERS Safety Report 7508582-8 (Version None)
Quarter: 2011Q2

REPORT INFORMATION
  Report Type: 
  Country: None (occurrence: None)
  Receive Date: 20110527
  Receipt Date: 20100414
  Transmission Date: 20111010
  Serious: No
  Sender: FDA-Public Use
  Company Number: A0855710A

PATIENT
  Sex: Female

DRUGS (1)
  1. FLOLAN [Suspect]
     Indication: PULMONARY ARTERIAL PRESSURE INCREASED
     Dosage: 32NGKM UNKNOWN
     Dates: start: 20100306

REACTIONS (4)
  - THERAPEUTIC RESPONSE DECREASED [None]
  - PULMONARY ARTERIAL PRESSURE INCREASED [None]
  - ECHOCARDIOGRAM [None]
  - MALAISE [None]
